FAERS Safety Report 5983948-6 (Version None)
Quarter: 2008Q4

REPORT INFORMATION
  Report Type: 
  Country: None (occurrence: None)
  Receive Date: 20081208
  Receipt Date: 20081124
  Transmission Date: 20090506
  Serious: Yes (Other)
  Sender: FDA-Public Use
  Company Number: GB-ROCHE-577448

PATIENT
  Age: 38 Year
  Sex: Female
  Weight: 57.6 kg

DRUGS (12)
  1. ENFUVIRTIDE [Suspect]
     Indication: HIV INFECTION
     Route: 058
     Dates: start: 20050707
  2. TMC 125 [Suspect]
     Indication: HIV INFECTION
     Route: 048
     Dates: start: 20050707, end: 20060322
  3. KALETRA [Suspect]
     Indication: HIV INFECTION
     Dosage: PATIENT RECEIVED 8 CAPSULES (133.3 / 33.3 MG FORMULARY) DURING PREGNANCY
     Route: 048
     Dates: start: 20050707
  4. NAPROXEN [Suspect]
     Route: 065
  5. CALCIUM [Suspect]
     Route: 065
  6. VIREAD [Suspect]
     Indication: HIV INFECTION
     Route: 048
     Dates: start: 20050707
  7. ACYCLOVIR [Suspect]
     Indication: ANTIVIRAL PROPHYLAXIS
     Route: 065
  8. CITALOPRAM HYDROBROMIDE [Suspect]
     Indication: POST-TRAUMATIC STRESS DISORDER
     Route: 065
  9. METHADONE HCL [Suspect]
     Indication: NEUROPATHY PERIPHERAL
     Route: 065
  10. VITAMIN TAB [Suspect]
     Route: 065
  11. VITAMIN B COMPLEX CAP [Suspect]
     Route: 065
  12. FLUCONAZOLE [Suspect]
     Indication: ANTIFUNGAL PROPHYLAXIS
     Route: 065

REACTIONS (1)
  - ABORTION SPONTANEOUS [None]
